FAERS Safety Report 11163625 (Version 1)
Quarter: 2015Q2

REPORT INFORMATION
  Report Type: Spontaneous
  Country: US (occurrence: US)
  Receive Date: 20150604
  Receipt Date: 20150604
  Transmission Date: 20150821
  Serious: Yes (Other)
  Sender: FDA-Public Use
  Company Number: US-SA-2015SA004780

PATIENT
  Age: 71 Year
  Sex: Male

DRUGS (2)
  1. LANTUS SOLOSTAR [Suspect]
     Active Substance: INSULIN GLARGINE
     Indication: TYPE 2 DIABETES MELLITUS
     Dosage: DOSAGE: 30UQAM 10UQHS
     Route: 065
  2. SOLOSTAR [Concomitant]
     Active Substance: DEVICE
     Indication: TYPE 2 DIABETES MELLITUS
     Dosage: AT LEAST 5 YEARS AGO

REACTIONS (5)
  - Condition aggravated [Unknown]
  - Off label use [Unknown]
  - Vision blurred [Unknown]
  - Cataract [Unknown]
  - Drug ineffective [Unknown]
